FAERS Safety Report 9971486 (Version 1)
Quarter: 2014Q1

REPORT INFORMATION
  Report Type: Spontaneous
  Country: US (occurrence: None)
  Receive Date: 20140305
  Receipt Date: 20140305
  Transmission Date: 20141002
  Serious: No
  Sender: FDA-Public Use
  Company Number: None

PATIENT
  Age: 31 Year
  Sex: Female
  Weight: 68.04 kg

DRUGS (1)
  1. DOXYCYCLINE [Suspect]
     Indication: ENDOMETRITIS
     Dosage: TAKEN BY MOUTH
     Dates: start: 20140227, end: 20140302

REACTIONS (7)
  - Myalgia [None]
  - Fatigue [None]
  - Nausea [None]
  - Muscle spasms [None]
  - Constipation [None]
  - Malaise [None]
  - Gait disturbance [None]
